FAERS Safety Report 6510899-0 (Version None)
Quarter: 2009Q4

REPORT INFORMATION
  Report Type: 
  Country: None (occurrence: None)
  Receive Date: 20091222
  Receipt Date: 20090129
  Transmission Date: 20100525
  Serious: No
  Sender: FDA-Public Use
  Company Number: US-ASTRAZENECA-2009UW02692

PATIENT
  Age: 83 Year
  Sex: Female
  Weight: 68 kg

DRUGS (5)
  1. CRESTOR [Suspect]
     Route: 048
     Dates: start: 20081208
  2. LISINOPRIL [Concomitant]
     Route: 048
  3. ASPIRIN [Concomitant]
  4. EFFEXOR [Concomitant]
  5. M.V.I. [Concomitant]

REACTIONS (2)
  - ERYTHEMA [None]
  - SKIN EXFOLIATION [None]
